FAERS Safety Report 21967601 (Version 1)
Quarter: 2023Q1

REPORT INFORMATION
  Report Type: Spontaneous
  Country: US (occurrence: US)
  Receive Date: 20230208
  Receipt Date: 20230208
  Transmission Date: 20230418
  Serious: Yes (Other)
  Sender: FDA-Public Use
  Company Number: US-JNJFOC-20230205729

PATIENT
  Sex: Male
  Weight: 77.180 kg

DRUGS (1)
  1. REMICADE [Suspect]
     Active Substance: INFLIXIMAB
     Indication: Scleritis
     Route: 041

REACTIONS (2)
  - Blindness [Unknown]
  - Off label use [Unknown]
